FAERS Safety Report 7467940-0 (Version None)
Quarter: 2011Q2

REPORT INFORMATION
  Report Type: 
  Country: None (occurrence: None)
  Receive Date: 20110509
  Receipt Date: 20110211
  Transmission Date: 20111010
  Serious: No
  Sender: FDA-Public Use
  Company Number: US-ALEXION-A201100171

PATIENT
  Sex: Female

DRUGS (30)
  1. MACROBID [Concomitant]
     Indication: URINARY TRACT INFECTION
     Dosage: UNK, QD
     Route: 048
  2. ACIDOPHILUS [Concomitant]
     Dosage: 1 CAP, QD
     Route: 048
  3. VITAMIN B12                        /00056201/ [Concomitant]
     Dosage: 100 MCG, QD
     Route: 048
  4. VESICARE [Concomitant]
     Dosage: 5 MG, QD
     Route: 048
  5. FERROUS GLUCONATE [Concomitant]
     Dosage: 650 MG, BID
     Route: 048
  6. SOLIRIS [Suspect]
     Indication: PAROXYSMAL NOCTURNAL HAEMOGLOBINURIA
     Dosage: 900 MG, Q2W
     Route: 042
     Dates: start: 20070101
  7. BUSPAR [Concomitant]
     Dosage: 20 MG, BID
     Route: 048
  8. VITAMIN B6 [Concomitant]
     Indication: PAROXYSMAL NOCTURNAL HAEMOGLOBINURIA
     Dosage: 50 MG, QD
     Route: 048
  9. OMEPRAZOLE [Concomitant]
     Dosage: 20 MG, QD
     Route: 048
  10. GABAPENTIN [Concomitant]
     Indication: PAIN
     Dosage: UNK, QD
     Route: 048
  11. JANTOVEN [Concomitant]
     Indication: ANTICOAGULANT THERAPY
     Dosage: UNK
     Route: 048
  12. NABUMETONE [Concomitant]
     Indication: PAIN
     Dosage: 1000 MG, QD
     Route: 048
  13. FLUTICASONE PROPIONATE [Concomitant]
     Indication: SEASONAL ALLERGY
     Dosage: 2 SPRAYS, EACH NOSTRIL
     Route: 045
  14. HYDROXYZINE PAMOATE [Concomitant]
     Indication: ANXIETY
     Dosage: UNK, PRN
     Route: 048
  15. COLACE [Concomitant]
     Dosage: UNK, PRN
     Route: 048
  16. MULTI-VITAMINS [Concomitant]
     Dosage: UNK, QD
     Route: 048
  17. CYMBALTA [Concomitant]
     Dosage: 90 MG, QD
     Route: 048
  18. TYLENOL (CAPLET) [Concomitant]
     Indication: ARTHRITIS
     Dosage: 1300 MG, BID
     Route: 048
  19. ASPIRIN [Concomitant]
     Dosage: 81 MG, QOD
     Route: 048
  20. VITAMIN C                          /00008001/ [Concomitant]
     Dosage: UNK, BID
     Route: 048
  21. PROMETHAZINE [Concomitant]
     Indication: NAUSEA
     Dosage: UNK, PRN
     Route: 048
  22. CALCIUM CITRATE W/VITAMIN D NOS [Concomitant]
     Dosage: 600 MG, BID
     Route: 048
  23. SENOKOT [Concomitant]
     Dosage: UNK, PRN
     Route: 048
  24. FISH OIL [Concomitant]
     Dosage: 4 G, QD
     Route: 048
  25. POTASSIUM CITRATE [Concomitant]
     Dosage: 20 MEQ, BID
     Route: 048
  26. FOLIC ACID [Concomitant]
     Indication: PAROXYSMAL NOCTURNAL HAEMOGLOBINURIA
     Dosage: 2 MG, QD
     Route: 048
  27. PREMARIN [Concomitant]
     Indication: URINARY TRACT INFECTION
     Dosage: 1 G, M W F
     Route: 061
  28. AMITRIPTYLINE HCL [Concomitant]
     Indication: PAIN
     Dosage: 10 MG, QD
     Route: 048
  29. HYDROCORTISONE [Concomitant]
     Indication: ADRENAL INSUFFICIENCY
     Dosage: 20 MG QAM, 5 MG QPM
     Route: 048
  30. ZOLPIDEM [Concomitant]
     Indication: INSOMNIA
     Dosage: UNK, PRN
     Route: 048

REACTIONS (5)
  - ERYTHEMA [None]
  - PRURITUS [None]
  - WOUND INFECTION [None]
  - WOUND DRAINAGE [None]
  - OPEN WOUND [None]
